FAERS Safety Report 8514652-8 (Version None)
Quarter: 2012Q3

REPORT INFORMATION
  Report Type: 
  Country: None (occurrence: None)
  Receive Date: 20120717
  Receipt Date: 20120716
  Transmission Date: 20120928
  Serious: No
  Sender: FDA-Public Use
  Company Number: US-009507513-1207USA004495

PATIENT

DRUGS (1)
  1. PROPECIA [Suspect]
     Indication: ALOPECIA
     Dosage: UNK
     Dates: start: 20110201, end: 20111101

REACTIONS (5)
  - EMOTIONAL DISTRESS [None]
  - COGNITIVE DISORDER [None]
  - EJACULATION DISORDER [None]
  - ERECTILE DYSFUNCTION [None]
  - EJACULATION FAILURE [None]
